FAERS Safety Report 9772651 (Version 3)
Quarter: 2015Q3

REPORT INFORMATION
  Report Type: Spontaneous
  Country: US (occurrence: US)
  Receive Date: 20131219
  Receipt Date: 20150721
  Transmission Date: 20151125
  Serious: No
  Sender: FDA-Public Use
  Company Number: US-GILEAD-2010-0029581

PATIENT
  Age: 63 Year
  Sex: Female

DRUGS (2)
  1. CAYSTON [Suspect]
     Active Substance: AZTREONAM
     Dates: start: 201005
  2. CAYSTON [Suspect]
     Active Substance: AZTREONAM
     Indication: BRONCHIECTASIS
     Dates: start: 20100618

REACTIONS (5)
  - Lethargy [Unknown]
  - Cough [Unknown]
  - Feeling abnormal [Unknown]
  - Haemoptysis [Unknown]
  - Asthenia [Unknown]
